FAERS Safety Report 8342800-1 (Version None)
Quarter: 2012Q2

REPORT INFORMATION
  Report Type: 
  Country: None (occurrence: None)
  Receive Date: 20120503
  Receipt Date: 20110112
  Transmission Date: 20120825
  Serious: Yes (Death, Other)
  Sender: FDA-Public Use
  Company Number: DE-021895

PATIENT
  Age: 80 Year
  Sex: Male

DRUGS (2)
  1. (OFATUMUMAB) [Suspect]
     Indication: CHRONIC LYMPHOCYTIC LEUKAEMIA
     Dosage: SEE IMAGE
     Route: 042
     Dates: start: 20090909, end: 20091202
  2. (CHLORAMBUCIL) [Suspect]
     Indication: CHRONIC LYMPHOCYTIC LEUKAEMIA
     Dosage: 10 MGM2 DAYS 1-7 EVERY 28 DAYS ORAL
     Route: 048
     Dates: start: 20090909, end: 20091208

REACTIONS (1)
  - ANAEMIA HAEMOLYTIC AUTOIMMUNE [None]
